FAERS Safety Report 12661835 (Version 1)
Quarter: 2016Q3

REPORT INFORMATION
  Report Type: Spontaneous
  Country: US (occurrence: US)
  Receive Date: 20160817
  Receipt Date: 20160817
  Transmission Date: 20161109
  Serious: No
  Sender: FDA-Public Use
  Company Number: US-FRI-1000079389

PATIENT
  Sex: Female
  Weight: 122 kg

DRUGS (9)
  1. XANAX [Concomitant]
     Active Substance: ALPRAZOLAM
     Indication: INSOMNIA
     Route: 048
     Dates: start: 201111
  2. SOMA [Concomitant]
     Active Substance: CARISOPRODOL
     Indication: MUSCLE SPASMS
     Dosage: 350MG
  3. IBUPROFEN. [Concomitant]
     Active Substance: IBUPROFEN
  4. GABAPENTIN. [Concomitant]
     Active Substance: GABAPENTIN
     Dosage: 900MG
     Route: 048
     Dates: start: 20150713
  5. CELEXA [Suspect]
     Active Substance: CITALOPRAM HYDROBROMIDE
     Indication: DEPRESSION
     Dosage: 40MG
     Route: 048
     Dates: end: 20150713
  6. CHANTIX [Concomitant]
     Active Substance: VARENICLINE TARTRATE
     Indication: EX-TOBACCO USER
     Route: 048
     Dates: start: 20150415
  7. MOBIC [Concomitant]
     Active Substance: MELOXICAM
     Indication: ARTHRITIS
     Dates: start: 201407
  8. GABAPENTIN. [Concomitant]
     Active Substance: GABAPENTIN
     Indication: PAIN IN EXTREMITY
     Dosage: 300MG
     Route: 048
     Dates: start: 201411
  9. HYDROXYZINE [Concomitant]
     Active Substance: HYDROXYZINE\HYDROXYZINE HYDROCHLORIDE
     Indication: SKIN EXFOLIATION
     Dosage: 10MG
     Route: 048
     Dates: start: 2014

REACTIONS (1)
  - Drug ineffective [Recovered/Resolved]
